FAERS Safety Report 5190902-3 (Version None)
Quarter: 2006Q4

REPORT INFORMATION
  Report Type: 
  Country: None (occurrence: None)
  Receive Date: 20061222
  Receipt Date: 20061211
  Transmission Date: 20070319
  Serious: Yes (Hospitalization, Other)
  Sender: FDA-Public Use
  Company Number: US-ELI_LILLY_AND_COMPANY-US200612001654

PATIENT
  Age: 39 Year
  Sex: Female
  Weight: 82.539 kg

DRUGS (1)
  1. ZYPREXA [Suspect]
     Dosage: UNK, UNKNOWN
     Dates: start: 20020101, end: 20040101

REACTIONS (2)
  - CARDIAC DISORDER [None]
  - PANCREATITIS [None]
